FAERS Safety Report 9548725 (Version 1)
Quarter: 2013Q2

REPORT INFORMATION
  Report Type: Spontaneous
  Country: US (occurrence: None)
  Receive Date: 20130627
  Receipt Date: 20130627
  Transmission Date: 20140414
  Serious: Yes (Other)
  Sender: FDA-Public Use
  Company Number: 1000044608

PATIENT
  Age: 90 Year
  Sex: Male

DRUGS (3)
  1. LINZESS [Suspect]
     Indication: CONSTIPATION
     Dosage: 145 MCG (145 MCG, 1 IN 1 D), ORAL
     Route: 048
     Dates: start: 201304
  2. LATANOPROST (LATANOPROST) (LATANOPROST) [Concomitant]
  3. VITAMINS NOS (VITAMINS NOS) (VITAMINS NOS) [Concomitant]

REACTIONS (2)
  - Nausea [None]
  - Vision blurred [None]
